FAERS Safety Report 7775068-5 (Version None)
Quarter: 2011Q3

REPORT INFORMATION
  Report Type: 
  Country: None (occurrence: None)
  Receive Date: 20110923
  Receipt Date: 20110914
  Transmission Date: 20111222
  Serious: Yes (Hospitalization, Disabling)
  Sender: FDA-Public Use
  Company Number: DK-JNJFOC-20100905311

PATIENT
  Sex: Male

DRUGS (7)
  1. METHOTREXATE [Suspect]
     Indication: URTICARIA
     Dates: start: 20050301, end: 20051201
  2. REMICADE [Suspect]
     Indication: ANKYLOSING SPONDYLITIS
     Route: 042
     Dates: end: 20100311
  3. METHOTREXATE [Suspect]
     Dates: start: 20060501, end: 20080103
  4. HUMIRA [Suspect]
     Dates: end: 20110601
  5. PREDNISOLONE [Concomitant]
     Indication: URTICARIA
     Dates: start: 20051111, end: 20070613
  6. REMICADE [Suspect]
     Route: 042
     Dates: start: 20051125
  7. HUMIRA [Suspect]
     Indication: ANKYLOSING SPONDYLITIS
     Dates: start: 20100909

REACTIONS (10)
  - PROSTATE CANCER [None]
  - BONE MARROW FAILURE [None]
  - PNEUMONIA [None]
  - THROMBOCYTOPENIA [None]
  - SARCOIDOSIS [None]
  - INFECTION [None]
  - VARICES OESOPHAGEAL [None]
  - COUGH [None]
  - HEPATIC CIRRHOSIS [None]
  - BONE MARROW GRANULOMA [None]
